FAERS Safety Report 22973766 (Version 2)
Quarter: 2023Q4

REPORT INFORMATION
  Report Type: Spontaneous
  Country: CA (occurrence: CA)
  Receive Date: 20230922
  Receipt Date: 20231031
  Transmission Date: 20240109
  Serious: Yes (Death, Other)
  Sender: FDA-Public Use
  Company Number: CA-AMGEN-CANSP2023167123

PATIENT

DRUGS (2)
  1. BEVACIZUMAB [Suspect]
     Active Substance: BEVACIZUMAB
     Indication: Glioma
     Dosage: UNK
     Route: 065
  2. ETOPOSIDE [Suspect]
     Active Substance: ETOPOSIDE
     Indication: Glioma
     Dosage: 50 MILLIGRAM PER SQUARE METER, FOR 21 DAYS OF A 28-DAY CYCLE
     Route: 048

REACTIONS (4)
  - Death [Fatal]
  - Glioma [Unknown]
  - Anaemia [Unknown]
  - Toxicity to various agents [Unknown]
